FAERS Safety Report 14892273 (Version 1)
Quarter: 2018Q2

REPORT INFORMATION
  Report Type: Spontaneous
  Country: US (occurrence: US)
  Receive Date: 20180508
  Receipt Date: 20180508
  Transmission Date: 20180711
  Serious: Yes (Hospitalization)
  Sender: FDA-Public Use
  Company Number: None

PATIENT
  Age: 41 Year
  Sex: Male

DRUGS (1)
  1. BALI GOLD (KRATOM) [Suspect]
     Active Substance: MITRAGYNINE\HERBALS
     Indication: PAIN MANAGEMENT
     Dosage: ?          QUANTITY:3 TEASPOON(S);?
     Route: 048
     Dates: start: 20180504, end: 20180504

REACTIONS (1)
  - Gastroenteritis salmonella [None]

NARRATIVE: CASE EVENT DATE: 20180506
